FAERS Safety Report 24450476 (Version 1)
Quarter: 2024Q4

REPORT INFORMATION
  Report Type: Spontaneous
  Country: US (occurrence: US)
  Receive Date: 20241017
  Receipt Date: 20241017
  Transmission Date: 20250115
  Serious: Yes (Other)
  Sender: BAYER HEALTHCARE PHARMACEUTICALS INC.
  Company Number: US-BAYER-2024A147614

PATIENT
  Age: 39 Year
  Sex: Female

DRUGS (1)
  1. MIRENA [Suspect]
     Active Substance: LEVONORGESTREL
     Indication: May-Thurner syndrome
     Dosage: 20?G/DAY
     Route: 015
     Dates: start: 20241004, end: 20241004

REACTIONS (6)
  - Uterine perforation [None]
  - Procedural pain [None]
  - Procedural haemorrhage [None]
  - Complication of device insertion [None]
  - Off label use of device [None]
  - Device use issue [None]

NARRATIVE: CASE EVENT DATE: 20241004
